FAERS Safety Report 13440867 (Version 2)
Quarter: 2017Q2

REPORT INFORMATION
  Report Type: Spontaneous
  Country: US (occurrence: US)
  Receive Date: 20170413
  Receipt Date: 20170419
  Transmission Date: 20170830
  Serious: Yes (Other)
  Sender: FDA-Public Use
  Company Number: US-LUNDBECK-DKLU2029122

PATIENT
  Age: 8 Month
  Sex: Male

DRUGS (2)
  1. SABRIL [Suspect]
     Active Substance: VIGABATRIN
     Indication: INFANTILE SPASMS
     Route: 065
  2. ONFI [Concomitant]
     Active Substance: CLOBAZAM
     Indication: INFANTILE SPASMS
     Route: 065

REACTIONS (2)
  - Seizure [Unknown]
  - Electroencephalogram abnormal [Unknown]

NARRATIVE: CASE EVENT DATE: 20170310
